FAERS Safety Report 21529785 (Version 2)
Quarter: 2022Q4

REPORT INFORMATION
  Report Type: Spontaneous
  Country: US (occurrence: US)
  Receive Date: 20221031
  Receipt Date: 20221206
  Transmission Date: 20230112
  Serious: Yes (Death)
  Sender: FDA-Public Use
  Company Number: US-SECURA BIO, INC.-2022-SECUR-US000123

PATIENT

DRUGS (2)
  1. COPIKTRA [Suspect]
     Active Substance: DUVELISIB
     Indication: T-cell lymphoma
     Dosage: 25 MG, BID
     Route: 048
     Dates: start: 202112
  2. COPIKTRA [Suspect]
     Active Substance: DUVELISIB
     Dosage: UNK
     Route: 048
     Dates: start: 20220221

REACTIONS (1)
  - Death [Fatal]

NARRATIVE: CASE EVENT DATE: 20220901
